FAERS Safety Report 9435409 (Version 1)
Quarter: 2013Q3

REPORT INFORMATION
  Report Type: Spontaneous
  Country: JP (occurrence: None)
  Receive Date: 20130730
  Receipt Date: 20130730
  Transmission Date: 20140515
  Serious: Yes (Hospitalization)
  Sender: FDA-Public Use
  Company Number: THQ2012A08603

PATIENT
  Age: 76 Year
  Sex: Female

DRUGS (3)
  1. TAKEPRON (LANSOPRAZOLE) [Suspect]
     Indication: HELICOBACTER INFECTION
     Route: 048
     Dates: start: 20120901, end: 20120907
  2. SAWACILLIN [Suspect]
     Indication: HELICOBACTER INFECTION
     Route: 048
     Dates: start: 20120901, end: 20120907
  3. CLARITH [Suspect]
     Indication: HELICOBACTER INFECTION
     Route: 048
     Dates: start: 20120901, end: 20120907

REACTIONS (1)
  - Drug-induced liver injury [None]
